FAERS Safety Report 7384052-5 (Version None)
Quarter: 2011Q1

REPORT INFORMATION
  Report Type: 
  Country: None (occurrence: None)
  Receive Date: 20110330
  Receipt Date: 20110316
  Transmission Date: 20110831
  Serious: Yes (Hospitalization, Other)
  Sender: FDA-Public Use
  Company Number: PHHY2011US21229

PATIENT
  Age: 64 Year
  Sex: Male

DRUGS (5)
  1. MYCOPHENOLATE MOFETIL [Suspect]
     Indication: IMMUNOSUPPRESSION
     Dosage: 500 MG, BID
  2. TACROLIMUS [Suspect]
     Indication: IMMUNOSUPPRESSION
     Dosage: 5 MG, BID
  3. THYMOGLOBULIN [Suspect]
     Indication: TRANSPLANT REJECTION
  4. BASILIXIMAB [Suspect]
     Indication: RENAL TRANSPLANT
  5. PREDNISONE [Suspect]
     Indication: IMMUNOSUPPRESSION
     Dosage: 7.5 MG, QD

REACTIONS (14)
  - NOCARDIA TEST POSITIVE [None]
  - PYREXIA [None]
  - GAIT DISTURBANCE [None]
  - CONFUSIONAL STATE [None]
  - PNEUMONITIS [None]
  - FALL [None]
  - ATYPICAL MYCOBACTERIAL INFECTION [None]
  - MEMORY IMPAIRMENT [None]
  - NEUTROPENIA [None]
  - ACID FAST BACILLI INFECTION [None]
  - LUNG NEOPLASM [None]
  - SOMNOLENCE [None]
  - FATIGUE [None]
  - CYTOMEGALOVIRUS COLITIS [None]
